FAERS Safety Report 9732732 (Version 2)
Quarter: 2014Q1

REPORT INFORMATION
  Report Type: Spontaneous
  Country: US (occurrence: US)
  Receive Date: 20131204
  Receipt Date: 20140123
  Transmission Date: 20141002
  Serious: Yes (Other)
  Sender: FDA-Public Use
  Company Number: US-GLAXOSMITHKLINE-A1051448A

PATIENT
  Age: 60 Year
  Sex: Female

DRUGS (7)
  1. ADVAIR [Suspect]
     Indication: ASTHMA
     Dosage: 1PUFF TWICE PER DAY
     Route: 055
  2. METFORMIN ER [Concomitant]
  3. MEPERIDINE [Concomitant]
  4. MAXAIR AUTOHALER [Concomitant]
  5. ATORVASTATIN [Concomitant]
  6. LYRICA [Concomitant]
  7. HYDROCODONE [Concomitant]

REACTIONS (2)
  - Respiratory distress [Unknown]
  - Dyspnoea [Unknown]
